FAERS Safety Report 6731792-4 (Version None)
Quarter: 2010Q2

REPORT INFORMATION
  Report Type: 
  Country: None (occurrence: None)
  Receive Date: 20100519
  Receipt Date: 20100507
  Transmission Date: 20101027
  Serious: Yes (Hospitalization)
  Sender: FDA-Public Use
  Company Number: JP-PFIZER INC-2010059544

PATIENT
  Age: 62 Year
  Sex: Male

DRUGS (5)
  1. SUNITINIB MALATE [Suspect]
     Indication: RENAL CANCER
     Dosage: 50 MG, DAILY
     Dates: start: 20091130, end: 20100324
  2. LOXONIN [Concomitant]
     Route: 048
     Dates: end: 20100324
  3. OLMESARTAN MEDOXOMIL [Concomitant]
     Route: 048
     Dates: end: 20100324
  4. NORVASC [Concomitant]
     Route: 048
     Dates: end: 20100324
  5. FAMOTIDINE [Concomitant]
     Dates: end: 20100324

REACTIONS (3)
  - GASTROINTESTINAL AMYLOIDOSIS [None]
  - ILEUS [None]
  - RENAL IMPAIRMENT [None]
